FAERS Safety Report 10584943 (Version 3)
Quarter: 2014Q4

REPORT INFORMATION
  Report Type: Spontaneous
  Country: CA (occurrence: CA)
  Receive Date: 20141114
  Receipt Date: 20141204
  Transmission Date: 20150529
  Serious: Yes (Other)
  Sender: FDA-Public Use
  Company Number: CA-JNJFOC-20141104001

PATIENT

DRUGS (3)
  1. RIBAVIRIN. [Suspect]
     Active Substance: RIBAVIRIN
     Indication: HEPATITIS C
     Route: 065
  2. SIMEPREVIR [Suspect]
     Active Substance: SIMEPREVIR
     Indication: HEPATITIS C
     Route: 065
  3. SOFOSBUVIR [Suspect]
     Active Substance: SOFOSBUVIR
     Indication: HEPATITIS
     Route: 065

REACTIONS (11)
  - Platelet count increased [Unknown]
  - Hepatic failure [Unknown]
  - Bilirubin conjugated increased [Unknown]
  - Off label use [Unknown]
  - Renal failure [Unknown]
  - Ascites [Unknown]
  - Infection [Unknown]
  - Small intestinal perforation [Unknown]
  - Jaundice [Unknown]
  - Haemorrhage [Unknown]
  - Anaemia [Unknown]
